FAERS Safety Report 9604141 (Version 1)
Quarter: 2013Q4

REPORT INFORMATION
  Report Type: Spontaneous
  Country: DE (occurrence: DE)
  Receive Date: 20131008
  Receipt Date: 20131008
  Transmission Date: 20140711
  Serious: Yes (Other)
  Sender: FDA-Public Use
  Company Number: GXKR2013DE003183

PATIENT
  Sex: Female

DRUGS (3)
  1. CITALOPRAM [Suspect]
     Dosage: UNK MG, UNK
     Route: 048
  2. INFECTRIM [Concomitant]
     Indication: CYSTITIS NONINFECTIVE
     Dosage: UNK, PRN
     Route: 048
  3. ACIMOL [Concomitant]
     Indication: CYSTITIS NONINFECTIVE
     Route: 048

REACTIONS (2)
  - Stillbirth [Unknown]
  - Exposure during pregnancy [Unknown]
